FAERS Safety Report 5169796-8 (Version None)
Quarter: 2006Q4

REPORT INFORMATION
  Report Type: 
  Country: None (occurrence: None)
  Receive Date: 20061212
  Receipt Date: 20061207
  Transmission Date: 20070319
  Serious: Yes (Other)
  Sender: FDA-Public Use
  Company Number: US-AVENTIS-200619890US

PATIENT
  Sex: Female

DRUGS (9)
  1. LOVENOX [Suspect]
     Indication: KNEE ARTHROPLASTY
     Dosage: DOSE: UNK
     Dates: start: 20060814
  2. ATENOLOL [Concomitant]
  3. DIOVAN HCT [Concomitant]
     Dosage: DOSE: 80/12.5 MG
  4. TRICOR                             /00090101/ [Concomitant]
  5. PRILOSEC                           /00661201/ [Concomitant]
  6. IRON [Concomitant]
     Dosage: DOSE: UNK
  7. ASCORBIC ACID [Concomitant]
     Dosage: DOSE: UNK
  8. CENTRUM                            /00554501/ [Concomitant]
     Dosage: DOSE: UNK
  9. FISH OIL [Concomitant]
     Dosage: DOSE: UNK

REACTIONS (1)
  - SPINAL HAEMATOMA [None]
